FAERS Safety Report 8773902 (Version 2)
Quarter: 2012Q4

REPORT INFORMATION
  Report Type: 
  Country: US (occurrence: US)
  Receive Date: 20120907
  Receipt Date: 20120913
  Transmission Date: 20130627
  Serious: Yes (Death)
  Sender: FDA-Public Use
  Company Number: US-UCBSA-064943

PATIENT
  Sex: Female

DRUGS (1)
  1. NEUPRO [Suspect]
     Indication: RESTLESS LEGS SYNDROME
     Route: 062
     Dates: start: 2012, end: 2012

REACTIONS (1)
  - Death [Fatal]
